FAERS Safety Report 7781541-6 (Version None)
Quarter: 2011Q3

REPORT INFORMATION
  Report Type: 
  Country: None (occurrence: None)
  Receive Date: 20110927
  Receipt Date: 20110920
  Transmission Date: 20111222
  Serious: Yes (Death)
  Sender: FDA-Public Use
  Company Number: US-TEVA-301693USA

PATIENT
  Sex: Female

DRUGS (1)
  1. CLOZAPINE [Suspect]
     Route: 048

REACTIONS (1)
  - ASPHYXIA [None]
